FAERS Safety Report 10050591 (Version 1)
Quarter: 2014Q2

REPORT INFORMATION
  Report Type: Spontaneous
  Country: US (occurrence: US)
  Receive Date: 20140401
  Receipt Date: 20140401
  Transmission Date: 20141212
  Serious: No
  Sender: FDA-Public Use
  Company Number: US-ASTRAZENECA-2013SE60953

PATIENT
  Age: 46 Year
  Sex: Male
  Weight: 74.8 kg

DRUGS (3)
  1. NEXIUM [Suspect]
     Indication: GASTROOESOPHAGEAL REFLUX DISEASE
     Route: 048
     Dates: start: 2011, end: 201307
  2. PRILOSEC [Suspect]
     Indication: GASTROOESOPHAGEAL REFLUX DISEASE
     Dosage: DAILY
     Route: 048
     Dates: start: 20130730, end: 20130804
  3. ATRIPLA [Concomitant]
     Indication: HIV INFECTION
     Dosage: ONE TABLET HS
     Route: 048
     Dates: start: 2008, end: 201307

REACTIONS (6)
  - Dysphagia [Unknown]
  - Throat irritation [Unknown]
  - Aphagia [Unknown]
  - Dyspepsia [Unknown]
  - Drug dose omission [Unknown]
  - Drug ineffective [Unknown]
